FAERS Safety Report 4796192-5 (Version None)
Quarter: 2005Q4

REPORT INFORMATION
  Report Type: 
  Country: None (occurrence: None)
  Receive Date: 20051007
  Receipt Date: 20050926
  Transmission Date: 20060501
  Serious: Yes (Other)
  Sender: FDA-Public Use
  Company Number: 2005133971

PATIENT
  Sex: Female

DRUGS (7)
  1. ZOLOFT [Suspect]
     Indication: DEPRESSION
     Dosage: 200 MG (100 MG, 2 IN 1 D), ORAL
     Route: 048
     Dates: start: 20000101, end: 20050701
  2. XANAX [Suspect]
     Indication: BLOOD CORTISOL DECREASED
     Dosage: 2 MG (1 MG, 2 IN 1 D), ORAL
     Route: 048
     Dates: start: 20000101
  3. PROVIGIL [Suspect]
     Indication: ILL-DEFINED DISORDER
     Dates: start: 20050901, end: 20050925
  4. METHADONE HCL [Concomitant]
  5. WELLBUTRIN SR [Concomitant]
  6. ADDERALL XR (AMFETAMINE ASPARTATE, AMFETAMINE SULFATE, DEXAMFETAMINE S [Concomitant]
  7. SYNTHROID [Concomitant]

REACTIONS (15)
  - ANAEMIA [None]
  - BLOOD GLUCOSE DECREASED [None]
  - DEATH OF SPOUSE [None]
  - ENZYME ABNORMALITY [None]
  - GRAND MAL CONVULSION [None]
  - HYPOTHALAMO-PITUITARY DISORDERS [None]
  - INFLUENZA [None]
  - LABORATORY TEST ABNORMAL [None]
  - LOSS OF CONSCIOUSNESS [None]
  - LYME DISEASE [None]
  - TREMOR [None]
  - VITAMIN B12 DECREASED [None]
  - WEIGHT DECREASED [None]
  - WEIGHT INCREASED [None]
  - WHITE BLOOD CELL COUNT INCREASED [None]
